FAERS Safety Report 21565598 (Version 2)
Quarter: 2022Q4

REPORT INFORMATION
  Report Type: Spontaneous
  Country: JP (occurrence: JP)
  Receive Date: 20221108
  Receipt Date: 20221208
  Transmission Date: 20230113
  Serious: No
  Sender: FDA-Public Use
  Company Number: JP-GSK-JP2022JPN156429

PATIENT

DRUGS (11)
  1. SOTROVIMAB [Suspect]
     Active Substance: SOTROVIMAB
     Indication: COVID-19
     Dosage: 500 MG, SINGLE
     Dates: start: 20221029, end: 20221029
  2. AZELNIDIPINE\OLMESARTAN MEDOXOMIL [Concomitant]
     Active Substance: AZELNIDIPINE\OLMESARTAN MEDOXOMIL
     Indication: Hypertension
     Dosage: 1 DF, QD
  3. METHYLCOBALAMIN [Concomitant]
     Active Substance: METHYLCOBALAMIN
     Dosage: 500 ?G, TID
  4. CELECOXIB TABLET [Concomitant]
     Dosage: 100 MG, BID
  5. LIMAPROST [Concomitant]
     Active Substance: LIMAPROST
     Dosage: 5 ?G, TID
  6. PREGABALIN OD TABLETS [Concomitant]
     Dosage: 50 MG, TID
  7. ELDECALCITOL CAPSULES [Concomitant]
     Indication: Osteoporosis
     Dosage: 0.75 ?G, QD
  8. CARBOCYSTEINE [Concomitant]
     Active Substance: CARBOCYSTEINE
     Indication: Productive cough
     Dosage: 500 MG, TID
  9. B-FLUID [Concomitant]
     Indication: Nutritional supplementation
     Dosage: 500 ML
     Route: 041
  10. PRIMPERAN INJECTION (METOCLOPRAMIDE CHLORHYDRATE) [Concomitant]
     Indication: Vomiting
     Dosage: 20 MG, QD
  11. FAMOTIDINE [Concomitant]
     Active Substance: FAMOTIDINE
     Dosage: 20 MG, BID/SALINE SOLUTION

REACTIONS (6)
  - Infusion related reaction [Recovered/Resolved]
  - Oxygen saturation decreased [Recovered/Resolved]
  - Wheezing [Recovering/Resolving]
  - Blood pressure increased [Recovered/Resolved]
  - Productive cough [Not Recovered/Not Resolved]
  - Dyspnoea [Recovered/Resolved]

NARRATIVE: CASE EVENT DATE: 20221029
